FAERS Safety Report 9990649 (Version 1)
Quarter: 2014Q1

REPORT INFORMATION
  Report Type: Report from Study
  Country: US (occurrence: US)
  Receive Date: 20140310
  Receipt Date: 20140310
  Transmission Date: 20141002
  Serious: No
  Sender: FDA-Public Use
  Company Number: US-ABBVIE-13P-163-1138599-00

PATIENT
  Age: 44 Year
  Sex: Female
  Weight: 77.18 kg

DRUGS (2)
  1. HUMIRA [Suspect]
     Indication: PSORIATIC ARTHROPATHY
     Dates: start: 2003, end: 201305
  2. HUMIRA [Suspect]
     Dates: start: 201308

REACTIONS (7)
  - Nasal congestion [Unknown]
  - Pneumonia [Recovered/Resolved]
  - Fungal infection [Recovered/Resolved]
  - Upper respiratory tract infection [Unknown]
  - Injection site pain [Unknown]
  - Arthralgia [Unknown]
  - Pneumonia [Recovered/Resolved]
